FAERS Safety Report 9601854 (Version 2)
Quarter: 2014Q2

REPORT INFORMATION
  Report Type: Spontaneous
  Country: IT (occurrence: IT)
  Receive Date: 20131007
  Receipt Date: 20140409
  Transmission Date: 20141212
  Serious: Yes (Hospitalization)
  Sender: FDA-Public Use
  Company Number: IT-ACCORD-019724

PATIENT
  Age: 68 Year
  Sex: Female

DRUGS (8)
  1. PACLITAXEL/PACLITAXEL LIPOSOME [Suspect]
     Indication: UTERINE NEOPLASM
     Dosage: 1 DF = 6 MG/ML?PERIOD 1 DAY
     Route: 042
     Dates: start: 20130827
  2. CLEXANE [Concomitant]
     Route: 058
  3. DEXAMETHASONE [Concomitant]
     Route: 042
  4. ONDANSETRON/ONDANSETRON HYDROCHLORIDE [Concomitant]
     Route: 030
  5. RANITIDINE [Concomitant]
  6. CHLORPHENAMINE [Concomitant]
     Route: 042
  7. AMIODAR [Concomitant]
     Route: 048
  8. PANTOPRAZOLE [Concomitant]
     Route: 048

REACTIONS (4)
  - Acute pulmonary oedema [Recovered/Resolved]
  - Atrial fibrillation [Recovered/Resolved]
  - Off label use [Unknown]
  - Acute respiratory failure [Recovered/Resolved]
